FAERS Safety Report 6688620-5 (Version None)
Quarter: 2010Q2

REPORT INFORMATION
  Report Type: 
  Country: None (occurrence: None)
  Receive Date: 20100420
  Receipt Date: 20100408
  Transmission Date: 20101027
  Serious: Yes (Other)
  Sender: FDA-Public Use
  Company Number: US-SANOFI-AVENTIS-2010SA020274

PATIENT
  Age: 65 Year
  Sex: Female

DRUGS (3)
  1. LANTUS [Suspect]
     Indication: TYPE 2 DIABETES MELLITUS
     Dosage: DOSE:55 UNIT(S)
     Route: 058
  2. OPTICLICK [Suspect]
     Indication: TYPE 2 DIABETES MELLITUS
  3. ALL OTHER THERAPEUTIC PRODUCTS [Concomitant]
     Dosage: DOSE:120 UNIT(S)
     Route: 065

REACTIONS (4)
  - BLOOD GLUCOSE INCREASED [None]
  - GASTROINTESTINAL CARCINOMA [None]
  - GASTROINTESTINAL INFLAMMATION [None]
  - INTESTINAL OBSTRUCTION [None]
